FAERS Safety Report 5099058-9 (Version None)
Quarter: 2006Q3

REPORT INFORMATION
  Report Type: 
  Country: None (occurrence: None)
  Receive Date: 20060731
  Receipt Date: 20060214
  Transmission Date: 20061208
  Serious: Yes (Hospitalization)
  Sender: FDA-Public Use
  Company Number: 221656

PATIENT
  Age: 72 Year
  Sex: Female

DRUGS (2)
  1. RITUXAN [Suspect]
     Indication: NON-HODGKIN'S LYMPHOMA
     Dosage: 100
     Dates: start: 20060126
  2. ANTIHYPERTENSIVE MEDICATION NOS (ANTIHYPERTENSIVE NOS) [Concomitant]

REACTIONS (2)
  - HYPOTENSION [None]
  - VOMITING [None]
